FAERS Safety Report 5602627-8 (Version None)
Quarter: 2008Q1

REPORT INFORMATION
  Report Type: 
  Country: None (occurrence: None)
  Receive Date: 20080125
  Receipt Date: 20080117
  Transmission Date: 20080703
  Serious: Yes (Other)
  Sender: FDA-Public Use
  Company Number: GB-ROCHE-542338

PATIENT
  Age: 42 Year
  Sex: Female
  Weight: 93.6 kg

DRUGS (3)
  1. ORLISTAT [Suspect]
     Indication: OBESITY
     Route: 048
     Dates: start: 20071221, end: 20080110
  2. OMEPRAZOLE [Concomitant]
     Indication: HIATUS HERNIA
     Route: 048
  3. PARACETAMOL [Concomitant]
     Indication: PAIN
     Dosage: TAKEN WHEN NEEDED.
     Route: 048

REACTIONS (1)
  - GASTRIC OPERATION [None]
